FAERS Safety Report 5394112-6 (Version None)
Quarter: 2007Q3

REPORT INFORMATION
  Report Type: 
  Country: None (occurrence: None)
  Receive Date: 20070723
  Receipt Date: 20070531
  Transmission Date: 20080115
  Serious: Yes (Hospitalization)
  Sender: FDA-Public Use
  Company Number: DE-JNJFOC-20070600750

PATIENT
  Age: 68 Year
  Sex: Female
  Weight: 74 kg

DRUGS (2)
  1. METHOTREXATE [Suspect]
     Indication: PSORIASIS
  2. METHOTREXATE [Suspect]

REACTIONS (1)
  - IRIDOCYCLITIS [None]
